FAERS Safety Report 8476548-X (Version None)
Quarter: 2012Q2

REPORT INFORMATION
  Report Type: 
  Country: None (occurrence: None)
  Receive Date: 20120628
  Receipt Date: 20120615
  Transmission Date: 20120825
  Serious: Yes (Other)
  Sender: FDA-Public Use
  Company Number: DE-MYLANLABS-2012S1012827

PATIENT
  Age: 62 Year
  Sex: Female

DRUGS (14)
  1. AZATHIOPRINE [Suspect]
     Indication: PEMPHIGOID
  2. ACETYLSALICYLIC ACID SRT [Concomitant]
     Indication: PRODUCT USED FOR UNKNOWN INDICATION
  3. MYCOPHENOLATE MOFETIL [Suspect]
  4. DAPSONE [Concomitant]
     Indication: PEMPHIGOID
  5. PREDNISOLONE [Concomitant]
     Indication: PEMPHIGOID
  6. BETAMETHASONE VALERATE [Concomitant]
     Indication: PEMPHIGOID
     Route: 061
  7. CARBAMAZEPINE [Suspect]
     Indication: PRODUCT USED FOR UNKNOWN INDICATION
  8. TRAMADOL HCL [Concomitant]
     Indication: PRODUCT USED FOR UNKNOWN INDICATION
  9. METHYLPREDNISOLONE [Concomitant]
     Indication: DERMATITIS BULLOUS
  10. MYCOPHENOLATE MOFETIL [Suspect]
     Indication: PRODUCT USED FOR UNKNOWN INDICATION
  11. HYDROCHLOROTHIAZIDE [Concomitant]
     Indication: PRODUCT USED FOR UNKNOWN INDICATION
  12. PREDNISOLONE [Concomitant]
  13. NITRENDIPINE [Concomitant]
     Indication: PRODUCT USED FOR UNKNOWN INDICATION
  14. DEXAMETHASONE [Concomitant]
     Indication: PEMPHIGOID
     Route: 042

REACTIONS (4)
  - LYMPHOPENIA [None]
  - GRANULOCYTOPENIA [None]
  - CONDITION AGGRAVATED [None]
  - BONE MARROW FAILURE [None]
